FAERS Safety Report 19111355 (Version 2)
Quarter: 2021Q2

REPORT INFORMATION
  Report Type: Spontaneous
  Country: JP (occurrence: JP)
  Receive Date: 20210408
  Receipt Date: 20210416
  Transmission Date: 20210717
  Serious: Yes (Hospitalization)
  Sender: FDA-Public Use
  Company Number: JP-ENDO PHARMACEUTICALS INC-2021-002019

PATIENT
  Age: 87 Year
  Sex: Female
  Weight: 41 kg

DRUGS (1)
  1. THEO?24 [Suspect]
     Active Substance: THEOPHYLLINE ANHYDROUS
     Indication: ASTHMA
     Dosage: 400 MG, UNKNOWN
     Route: 048

REACTIONS (4)
  - Status epilepticus [Recovered/Resolved]
  - Partial seizures with secondary generalisation [Recovered/Resolved]
  - Central nervous system injury [Recovered/Resolved]
  - Lacunar infarction [Recovered/Resolved]
